FAERS Safety Report 12467593 (Version 2)
Quarter: 2017Q1

REPORT INFORMATION
  Report Type: Spontaneous
  Country: IT (occurrence: IT)
  Receive Date: 20160615
  Receipt Date: 20170324
  Transmission Date: 20170428
  Serious: Yes (Hospitalization, Other)
  Sender: FDA-Public Use
  Company Number: IT-AMGEN-ITASP2016074367

PATIENT
  Age: 25 Year
  Sex: Female
  Weight: 69 kg

DRUGS (2)
  1. XGEVA [Suspect]
     Active Substance: DENOSUMAB
     Indication: BONE GIANT CELL TUMOUR
     Dosage: 120 MG, Q4WK
     Route: 058
     Dates: start: 20160530
  2. XGEVA [Suspect]
     Active Substance: DENOSUMAB
     Dosage: 120 MG, QWK
     Route: 058

REACTIONS (12)
  - Abdominal pain [Unknown]
  - Shock [Unknown]
  - Peritonitis [Unknown]
  - Pneumonia [Unknown]
  - Sepsis [Unknown]
  - Abdominal abscess [Unknown]
  - Pyrexia [Unknown]
  - Infection [Not Recovered/Not Resolved]
  - Gastroduodenal haemorrhage [Not Recovered/Not Resolved]
  - Bacteroides test positive [Unknown]
  - Gastric haemorrhage [Not Recovered/Not Resolved]
  - Abdominal sepsis [Unknown]

NARRATIVE: CASE EVENT DATE: 20160606
